FAERS Safety Report 10156510 (Version 1)
Quarter: 2014Q2

REPORT INFORMATION
  Report Type: Report from Study
  Country: US (occurrence: US)
  Receive Date: 20140507
  Receipt Date: 20140507
  Transmission Date: 20141212
  Serious: Yes (Other)
  Sender: FDA-Public Use
  Company Number: US-ROCHE-1395707

PATIENT
  Age: 14 Year
  Sex: Female
  Weight: 58.3 kg

DRUGS (1)
  1. NUTROPIN AQ [Suspect]
     Indication: BODY HEIGHT BELOW NORMAL
     Route: 058

REACTIONS (6)
  - H1N1 influenza [Unknown]
  - Pneumonia [Unknown]
  - Growth retardation [Unknown]
  - Insulin-like growth factor increased [Unknown]
  - Delayed menarche [Unknown]
  - Arthralgia [Unknown]
